FAERS Safety Report 20877173 (Version 1)
Quarter: 2022Q2

REPORT INFORMATION
  Report Type: Spontaneous
  Country: US (occurrence: None)
  Receive Date: 20220526
  Receipt Date: 20220526
  Transmission Date: 20220720
  Serious: Yes (Death)
  Sender: FDA-Public Use
  Company Number: None

PATIENT
  Age: 74 Year
  Sex: Female
  Weight: 63.5 kg

DRUGS (13)
  1. CAPECITABINE [Suspect]
     Active Substance: CAPECITABINE
     Indication: Breast cancer female
     Dosage: FREQUENCY : TWICE A DAY;?
     Route: 048
  2. CAPECITABINE [Suspect]
     Active Substance: CAPECITABINE
     Indication: Breast cancer female
     Dosage: FREQUENCY : TWICE A DAY;?
     Route: 048
  3. AMLODIPINE [Concomitant]
  4. ANASTROZOLE [Concomitant]
  5. BENAZEEPERIL [Concomitant]
  6. VITAMIN C [Concomitant]
  7. FAMOTIDINE [Concomitant]
  8. GINGER ROOT [Concomitant]
  9. IMODIUM [Concomitant]
  10. VITAMIN D [Concomitant]
  11. OMEPRAZOLE [Concomitant]
  12. ONDANSETRON [Concomitant]
  13. TYLENOL [Concomitant]

REACTIONS (1)
  - Death [None]
